FAERS Safety Report 18250881 (Version 1)
Quarter: 2020Q3

REPORT INFORMATION
  Report Type: Spontaneous
  Country: FR (occurrence: FR)
  Receive Date: 20200909
  Receipt Date: 20200909
  Transmission Date: 20201103
  Serious: Yes (Hospitalization)
  Sender: FDA-Public Use
  Company Number: FR-ANIPHARMA-2020-FR-000237

PATIENT
  Age: 73 Year
  Sex: Male
  Weight: 77 kg

DRUGS (6)
  1. BEFIZAL [Suspect]
     Active Substance: BEZAFIBRATE
     Dosage: 400 MG DAILY
     Route: 048
     Dates: start: 2013
  2. ALLOPURINOL. [Suspect]
     Active Substance: ALLOPURINOL
     Dosage: 300 MG DAILY
     Route: 048
     Dates: start: 2013
  3. CANDESARTAN CILEXETIL. [Suspect]
     Active Substance: CANDESARTAN CILEXETIL
     Indication: HYPERTENSION
     Dosage: 8 MG DAILY
     Route: 048
     Dates: end: 20200822
  4. KARDEGIC [Suspect]
     Active Substance: ASPIRIN DL-LYSINE
     Dosage: 75 MG DAILY
     Route: 048
     Dates: start: 2013
  5. OMEPRAZOLE. [Suspect]
     Active Substance: OMEPRAZOLE
     Dosage: 10 MG DAILY
     Route: 048
     Dates: end: 20200822
  6. METFORMIN [Suspect]
     Active Substance: METFORMIN HYDROCHLORIDE
     Dosage: 850 MG DAILY
     Route: 048
     Dates: start: 2013, end: 20200822

REACTIONS (1)
  - Pancreatitis acute [Recovering/Resolving]

NARRATIVE: CASE EVENT DATE: 20200822
